FAERS Safety Report 6933533-4 (Version None)
Quarter: 2010Q3

REPORT INFORMATION
  Report Type: 
  Country: None (occurrence: None)
  Receive Date: 20100820
  Receipt Date: 20100818
  Transmission Date: 20110219
  Serious: Yes (Death, Life-Threatening, Hospitalization, Other)
  Sender: FDA-Public Use
  Company Number: US-BRISTOL-MYERS SQUIBB COMPANY-15190382

PATIENT
  Age: 69 Year
  Sex: Female
  Weight: 63 kg

DRUGS (27)
  1. PACLITAXEL [Suspect]
     Indication: NON-SMALL CELL LUNG CANCER
     Dosage: 1ST CYCLE: 12MAY 2ND CYCLE: 08JUN2010
     Route: 042
     Dates: start: 20100512, end: 20100616
  2. CARBOPLATIN [Suspect]
     Indication: NON-SMALL CELL LUNG CANCER
     Dosage: 1 DF = AUC 6MG/ML/MINT;CYC 1: 417MG 1 IN 21D;CYC 2: 324MG ,1 IN 21 D FROM 08JUN10;
     Route: 042
     Dates: start: 20100512, end: 20100616
  3. PEGFILGRASTIM [Concomitant]
     Indication: NEUTROPENIA
     Dates: start: 20100602, end: 20100602
  4. LEVOFLOXACIN [Concomitant]
     Indication: CYSTITIS
     Dates: start: 20100611, end: 20100615
  5. CEFTRIAXONE [Concomitant]
     Indication: CYSTITIS
     Dates: start: 20100609, end: 20100609
  6. PHENERGAN [Concomitant]
     Indication: NAUSEA
     Dates: start: 20100512, end: 20100512
  7. ACYCLOVIR [Concomitant]
     Indication: HERPES SIMPLEX
     Dosage: TOTAL DOSE 800 MG (400 MG, 2 IN 1 D)
     Dates: start: 20100519
  8. MIRACLE MOUTHWASH [Concomitant]
     Route: 048
     Dates: start: 20100526, end: 20100528
  9. PAMIDRONATE DISODIUM [Concomitant]
     Dates: start: 20100527, end: 20100527
  10. MACROGOL [Concomitant]
     Indication: CONSTIPATION
     Dosage: 1/1 DAY
     Dates: start: 20090101
  11. LIDOCAINE [Concomitant]
     Indication: BACK PAIN
     Dates: start: 20100511, end: 20100622
  12. FUROSEMIDE [Concomitant]
     Indication: HYPERTENSION
     Dates: start: 20091201, end: 20100622
  13. ISRADIPINE [Concomitant]
     Indication: HYPERTENSION
     Dates: start: 20100512, end: 20100512
  14. TRAZODONE HCL [Concomitant]
     Indication: INSOMNIA
     Dates: start: 20060101
  15. ATENOLOL [Concomitant]
     Indication: HYPERTENSION
     Dosage: 50 MG 1/1D09JUN10-21JUN10(12D)
     Dates: start: 20080101, end: 20100512
  16. FOLIC ACID [Concomitant]
     Indication: NUTRITIONAL SUPPORT
     Dates: start: 20100401, end: 20100509
  17. POTASSIUM [Concomitant]
     Indication: NUTRITIONAL SUPPORT
     Dates: start: 20091201
  18. LORAZEPAM [Concomitant]
     Indication: ANXIETY
     Dosage: INTERRUPTED ON 22JUN10 + RESTARTED ON 29JUN10
     Dates: start: 20080101
  19. METHADONE HCL [Concomitant]
     Indication: BACK PAIN
     Dosage: INTRPD ON23JUN10(9Y)10MG3/D,24JUN-24JUN20MG1/1D,,25JUN-25JUN20MG2/D,26JUN-26JUN30MG1/1D,20MG1/1D.
     Dates: start: 20010101
  20. DULOXETINE HYDROCHLORIDE [Concomitant]
     Indication: ANXIETY
     Dates: start: 20090101, end: 20100501
  21. SIMVASTATIN [Concomitant]
     Indication: BLOOD CHOLESTEROL INCREASED
     Dates: start: 19990101
  22. DOLASETRON MESYLATE [Concomitant]
     Indication: NAUSEA
     Dates: start: 20100608, end: 20100608
  23. SERTRALINE HYDROCHLORIDE [Concomitant]
     Indication: DEPRESSION
     Dates: start: 20100601
  24. FENTANYL [Concomitant]
     Indication: ARTHRALGIA
     Dates: start: 20100601, end: 20100622
  25. PANTOPRAZOLE [Concomitant]
     Indication: PROPHYLAXIS
     Dosage: 20 MG 23JUN-28JUN10(5D)
     Dates: start: 20100610, end: 20100611
  26. AMLODIPINE BESYLATE [Concomitant]
     Indication: HYPERTENSION
     Dosage: 24JUN-26JUN10(2D)
     Dates: start: 20100512, end: 20100609
  27. FLUCONAZOLE [Concomitant]
     Indication: FUNGAL INFECTION
     Dosage: 100 MG1/1D FOR PROPHYLAXIS2JUN10-28JUN10(26D)
     Dates: start: 20100601, end: 20100601

REACTIONS (4)
  - CEREBRAL HAEMORRHAGE [None]
  - CYSTITIS [None]
  - MALIGNANT NEOPLASM PROGRESSION [None]
  - THROMBOCYTOPENIA [None]
